FAERS Safety Report 7859241-3 (Version None)
Quarter: 2011Q4

REPORT INFORMATION
  Report Type: 
  Country: None (occurrence: None)
  Receive Date: 20111027
  Receipt Date: 20111027
  Transmission Date: 20120403
  Serious: Yes (Other)
  Sender: FDA-Public Use
  Company Number: None

PATIENT
  Age: 59 Year
  Sex: Male
  Weight: 102.05 kg

DRUGS (22)
  1. HYDOCODONE/APAP 5/500 MG [Concomitant]
     Route: 048
  2. NOVOLIN N [Concomitant]
  3. TENOFOVIR DISOPROXIL FUMARATE [Concomitant]
     Route: 048
  4. FENTANYL [Concomitant]
     Route: 061
  5. FLUONISOLIDE 0.025% NASAL SPRAY [Concomitant]
     Route: 045
  6. TERAZOSIN HCL [Concomitant]
     Route: 048
  7. GABAPENTIN [Concomitant]
     Route: 048
  8. BUPROPION HCL [Concomitant]
     Route: 048
  9. CRESTOR [Suspect]
     Indication: HYPERLIPIDAEMIA
     Dosage: 5 MG -1/2 TABLET-
     Route: 048
     Dates: start: 20100811, end: 20110919
  10. CYANOCOBALAMIN [Concomitant]
     Route: 030
  11. LISINOPRIL [Concomitant]
     Route: 048
  12. TESTOSTERONE [Concomitant]
     Route: 030
  13. FENOFIBRATE [Concomitant]
     Route: 048
  14. ABACAVIR [Concomitant]
     Route: 048
  15. FUROSEMIDE [Concomitant]
     Route: 048
  16. FENTANYL [Concomitant]
     Route: 061
  17. OMEPRAZOLE [Concomitant]
     Route: 048
  18. CARVEDILOL [Concomitant]
  19. NOVOLIN R [Concomitant]
  20. WARFARIN SODIUM [Concomitant]
     Route: 048
  21. FOSAMPRENAVIR [Concomitant]
     Route: 048
  22. METOCLOPRAMIDE [Concomitant]
     Route: 048

REACTIONS (1)
  - TENDON RUPTURE [None]
